FAERS Safety Report 6197716-6 (Version None)
Quarter: 2009Q2

REPORT INFORMATION
  Report Type: 
  Country: None (occurrence: None)
  Receive Date: 20090521
  Receipt Date: 20090514
  Transmission Date: 20091009
  Serious: Yes (Other)
  Sender: FDA-Public Use
  Company Number: US-PFIZER INC-2006009230

PATIENT
  Sex: Female
  Weight: 68 kg

DRUGS (7)
  1. PROVERA [Suspect]
     Indication: HORMONE REPLACEMENT THERAPY
     Route: 048
     Dates: start: 19950701, end: 20000201
  2. MEDROXYPROGESTERONE ACETATE [Suspect]
     Indication: HORMONE REPLACEMENT THERAPY
     Dosage: 10 MG, UNK
     Route: 065
     Dates: start: 19990113, end: 20000209
  3. CYCRIN [Suspect]
     Indication: HORMONE REPLACEMENT THERAPY
     Dosage: 2.5 MG, UNK
     Route: 065
     Dates: start: 19950724, end: 19960609
  4. CYCRIN [Suspect]
     Dosage: 10 MG, UNK
     Route: 065
     Dates: start: 19960802, end: 19990627
  5. ESTRADIOL [Suspect]
     Indication: HORMONE REPLACEMENT THERAPY
     Dosage: 2 MG, UNK
     Route: 048
     Dates: start: 19960529, end: 19960726
  6. ESTRADIOL [Suspect]
     Dosage: 1 MG, UNK
     Route: 048
     Dates: start: 19961223, end: 20000209
  7. LIPITOR [Concomitant]
     Indication: BLOOD CHOLESTEROL DECREASED
     Dosage: 20 MG, DAILY
     Route: 065
     Dates: start: 19990318, end: 20030916

REACTIONS (1)
  - BREAST CANCER FEMALE [None]
